FAERS Safety Report 7069715-3 (Version None)
Quarter: 2010Q4

REPORT INFORMATION
  Report Type: 
  Country: None (occurrence: None)
  Receive Date: 20101028
  Receipt Date: 20100428
  Transmission Date: 20110411
  Serious: No
  Sender: FDA-Public Use
  Company Number: US-WYE-H14929610

PATIENT
  Sex: Female
  Weight: 63.56 kg

DRUGS (1)
  1. EFFEXOR [Suspect]
     Indication: MENOPAUSE
     Route: 048
     Dates: start: 20100401, end: 20100420

REACTIONS (5)
  - ARRHYTHMIA [None]
  - DYSPNOEA [None]
  - MALAISE [None]
  - PALPITATIONS [None]
  - TREMOR [None]
